FAERS Safety Report 17616897 (Version 1)
Quarter: 2020Q2

REPORT INFORMATION
  Report Type: Spontaneous
  Country: US (occurrence: US)
  Receive Date: 20200402
  Receipt Date: 20200402
  Transmission Date: 20200713
  Serious: No
  Sender: FDA-Public Use
  Company Number: None

PATIENT
  Age: 47 Year
  Sex: Male
  Weight: 96.75 kg

DRUGS (6)
  1. ABIRATERONE. [Suspect]
     Active Substance: ABIRATERONE ACETATE
     Indication: PROSTATE CANCER
     Route: 048
     Dates: start: 20200303, end: 20200402
  2. PREDNISONE 5 MG, ORAL [Concomitant]
  3. LISINOPRIL 20 MG, ORAL [Concomitant]
  4. HYDROCODONE-ACETAMINOPHEN 10 - 325 MG, ORAL [Concomitant]
  5. ALPRAZOLAM 0.5 MG, ORAL [Concomitant]
  6. METFORMIN 500 MG, ORAL [Concomitant]

REACTIONS (1)
  - Pain [None]

NARRATIVE: CASE EVENT DATE: 20200402
